FAERS Safety Report 7244019-4 (Version None)
Quarter: 2011Q1

REPORT INFORMATION
  Report Type: 
  Country: None (occurrence: None)
  Receive Date: 20110125
  Receipt Date: 20110121
  Transmission Date: 20110831
  Serious: Yes (Other)
  Sender: FDA-Public Use
  Company Number: ES-MERCK-1101ESP00034

PATIENT
  Age: 27 Month
  Sex: Male

DRUGS (2)
  1. SINGULAIR [Suspect]
     Indication: BRONCHIOLITIS
     Route: 048
     Dates: start: 20101106, end: 20110114
  2. SINGULAIR [Suspect]
     Indication: BRONCHOSPASM
     Route: 048
     Dates: start: 20101106, end: 20110114

REACTIONS (2)
  - SLEEP TERROR [None]
  - OBSESSIVE-COMPULSIVE DISORDER [None]
